FAERS Safety Report 21464097 (Version 2)
Quarter: 2022Q4

REPORT INFORMATION
  Report Type: Report from Study
  Country: US (occurrence: US)
  Receive Date: 20221017
  Receipt Date: 20221201
  Transmission Date: 20230113
  Serious: Yes (Other)
  Sender: FDA-Public Use
  Company Number: US-ABBVIE-4157715

PATIENT
  Sex: Male

DRUGS (9)
  1. HUMIRA [Suspect]
     Active Substance: ADALIMUMAB
     Indication: Psoriasis
     Dosage: 40MG/0.4ML
     Route: 058
  2. HUMIRA [Suspect]
     Active Substance: ADALIMUMAB
     Route: 058
  3. TRIAMCINOLONE ACETONIDE [Concomitant]
     Active Substance: TRIAMCINOLONE ACETONIDE
     Indication: Product used for unknown indication
  4. CLOBETASOL PROPIONATE [Concomitant]
     Active Substance: CLOBETASOL PROPIONATE
     Indication: Product used for unknown indication
  5. CALCIPOTRIENE [Concomitant]
     Active Substance: CALCIPOTRIENE
     Indication: Product used for unknown indication
  6. Betamethasone diprotionte ointment [Concomitant]
     Indication: Product used for unknown indication
  7. Desoximetasone gel [Concomitant]
     Indication: Product used for unknown indication
  8. Pfizer/BioNTech [Concomitant]
     Indication: COVID-19 immunisation
     Route: 030
  9. Pfizer/BioNTech [Concomitant]
     Indication: COVID-19 immunisation
     Dosage: BOOSTER DOSE
     Route: 030

REACTIONS (3)
  - Gallbladder disorder [Unknown]
  - Pain [Recovering/Resolving]
  - Blood disorder [Unknown]

NARRATIVE: CASE EVENT DATE: 20220101
